FAERS Safety Report 10090200 (Version 1)
Quarter: 2014Q2

REPORT INFORMATION
  Report Type: Spontaneous
  Country: US (occurrence: US)
  Receive Date: 20140421
  Receipt Date: 20140421
  Transmission Date: 20141212
  Serious: Yes (Hospitalization)
  Sender: FDA-Public Use
  Company Number: US-GLAXOSMITHKLINE-A1070032A

PATIENT
  Age: 79 Year
  Sex: Male

DRUGS (1)
  1. COREG [Suspect]
     Indication: CARDIAC DISORDER
     Dosage: 12.5MG UNKNOWN
     Route: 065
     Dates: start: 20041118

REACTIONS (2)
  - Cardiac operation [Unknown]
  - Nervous system disorder [Unknown]
